FAERS Safety Report 19288908 (Version 1)
Quarter: 2021Q2

REPORT INFORMATION
  Report Type: Spontaneous
  Country: US (occurrence: US)
  Receive Date: 20210522
  Receipt Date: 20210522
  Transmission Date: 20210717
  Serious: No
  Sender: FDA-Public Use
  Company Number: US-RADIUS HEALTH INC.-2021US001708

PATIENT
  Sex: Female

DRUGS (2)
  1. TYMLOS [Suspect]
     Active Substance: ABALOPARATIDE
     Indication: SENILE OSTEOPOROSIS
     Dosage: 80 MCG, QD
     Route: 058
     Dates: start: 20200925
  2. ENBREL [Concomitant]
     Active Substance: ETANERCEPT
     Indication: PRODUCT USED FOR UNKNOWN INDICATION

REACTIONS (4)
  - Joint swelling [Unknown]
  - Bone pain [Recovering/Resolving]
  - Arthralgia [Recovering/Resolving]
  - Off label use [Not Recovered/Not Resolved]
